FAERS Safety Report 20849322 (Version 1)
Quarter: 2022Q2

REPORT INFORMATION
  Report Type: Report from Study
  Country: JP (occurrence: JP)
  Receive Date: 20220519
  Receipt Date: 20220519
  Transmission Date: 20220721
  Serious: Yes (Hospitalization, Other)
  Sender: FDA-Public Use
  Company Number: JP-MSD-2205JPN001125J

PATIENT
  Age: 82 Year
  Sex: Male

DRUGS (2)
  1. MOLNUPIRAVIR [Suspect]
     Active Substance: MOLNUPIRAVIR
     Indication: COVID-19 treatment
     Dosage: 800 MILLIGRAM, BID
     Route: 050
     Dates: start: 20220401, end: 20220406
  2. ELIQUIS [Concomitant]
     Active Substance: APIXABAN
     Indication: COVID-19 treatment
     Dosage: UNK
     Route: 065

REACTIONS (3)
  - Pneumonia aspiration [Recovered/Resolved]
  - Product use issue [Unknown]
  - Product use in unapproved indication [Unknown]

NARRATIVE: CASE EVENT DATE: 20220401
